FAERS Safety Report 25595581 (Version 2)
Quarter: 2025Q3

REPORT INFORMATION
  Report Type: Spontaneous
  Country: EU (occurrence: EU)
  Receive Date: 20250723
  Receipt Date: 20250731
  Transmission Date: 20251020
  Serious: Yes (Hospitalization, Other)
  Sender: AUROBINDO
  Company Number: EU-MYLANLABS-2025M1056719

PATIENT
  Age: 74 Year
  Sex: Female

DRUGS (2)
  1. BUPROPION [Suspect]
     Active Substance: BUPROPION
     Indication: Product used for unknown indication
     Route: 065
  2. ACETAMINOPHEN\TRAMADOL [Suspect]
     Active Substance: ACETAMINOPHEN\TRAMADOL
     Indication: Product used for unknown indication
     Route: 065

REACTIONS (7)
  - Serotonin syndrome [Recovered/Resolved]
  - Intentional overdose [Unknown]
  - Psychomotor skills impaired [Unknown]
  - Disorientation [Unknown]
  - Overdose [Unknown]
  - Nystagmus [Recovering/Resolving]
  - Clonus [Unknown]
